FAERS Safety Report 9500927 (Version 1)
Quarter: 2013Q1

REPORT INFORMATION
  Report Type: Spontaneous
  Country: US (occurrence: None)
  Receive Date: 20130107
  Receipt Date: 20130107
  Transmission Date: 20140127
  Serious: No
  Sender: FDA-Public Use
  Company Number: PHEH2012US019424

PATIENT
  Age: 61 Year
  Sex: Female

DRUGS (1)
  1. GILENYA (FTY) CAPSULE, 0.5MG [Suspect]
     Indication: MULTIPLE SCLEROSIS
     Route: 048
     Dates: start: 20120626

REACTIONS (8)
  - Balance disorder [None]
  - Excoriation [None]
  - Fall [None]
  - Arthropod sting [None]
  - Restless legs syndrome [None]
  - Pain in extremity [None]
  - Muscular weakness [None]
  - Hypoaesthesia [None]
